FAERS Safety Report 23139450 (Version 1)
Quarter: 2023Q4

REPORT INFORMATION
  Report Type: Spontaneous
  Country: JP (occurrence: JP)
  Receive Date: 20231102
  Receipt Date: 20231102
  Transmission Date: 20240109
  Serious: Yes (Other)
  Sender: FDA-Public Use
  Company Number: JP-SUN PHARMACEUTICAL INDUSTRIES LTD-2023RR-416046

PATIENT
  Age: 84 Year
  Sex: Female

DRUGS (1)
  1. DOCETAXEL [Suspect]
     Active Substance: DOCETAXEL\DOCETAXEL ANHYDROUS
     Indication: Endometrial cancer
     Dosage: SECOND COURSE OF FOUR WEEKLY
     Route: 065

REACTIONS (2)
  - Lung abscess [Unknown]
  - Febrile neutropenia [Unknown]
